FAERS Safety Report 4917003-0 (Version None)
Quarter: 2006Q1

REPORT INFORMATION
  Report Type: 
  Country: None (occurrence: None)
  Receive Date: 20060221
  Receipt Date: 20060206
  Transmission Date: 20060701
  Serious: Yes (Hospitalization)
  Sender: FDA-Public Use
  Company Number: SEWYE367706FEB06

PATIENT
  Sex: Female

DRUGS (4)
  1. ENBREL [Suspect]
     Indication: RHEUMATOID ARTHRITIS
     Dosage: 50 MG PER WEEK
     Route: 058
     Dates: start: 20040817, end: 20051109
  2. ACETYLSALICYLIC ACID W/DIPYRIDAMOLE [Concomitant]
     Dosage: NOT SPECIFIED
  3. TROMBYL [Concomitant]
     Dosage: NOT SPECIFIED
  4. PLAVIX [Concomitant]
     Dosage: NOT SPECIFIED

REACTIONS (3)
  - BREAST PAIN [None]
  - CEREBRAL INFARCTION [None]
  - VASCULITIS [None]
